FAERS Safety Report 6545542-8 (Version None)
Quarter: 2010Q1

REPORT INFORMATION
  Report Type: 
  Country: None (occurrence: None)
  Receive Date: 20100119
  Receipt Date: 20100105
  Transmission Date: 20100710
  Serious: Yes (Other)
  Sender: FDA-Public Use
  Company Number: US-1170104

PATIENT
  Age: 81 Year
  Sex: Female
  Weight: 78.9259 kg

DRUGS (10)
  1. OMNIPRED [Suspect]
     Indication: PROPHYLAXIS
     Dosage: 1 GTT OD (TID OPHTHALMIC), (1 GTT OD BID OPHTHALMIC)
     Route: 047
     Dates: start: 20090331, end: 20090414
  2. OMNIPRED [Suspect]
     Indication: PROPHYLAXIS
     Dosage: 1 GTT OD (TID OPHTHALMIC), (1 GTT OD BID OPHTHALMIC)
     Route: 047
     Dates: start: 20090415, end: 20090511
  3. OMNIPRED [Suspect]
     Indication: PROPHYLAXIS
     Dosage: 1 GTT OD (TID OPHTHALMIC), (1 GTT OD BID OPHTHALMIC)
     Route: 047
     Dates: start: 20090520, end: 20090615
  4. NEVANAC [Suspect]
     Indication: PROPHYLAXIS
     Dosage: (1 GTT OD (TID OPHTHALMIC), (1 GTT OD BID OPHTHALMIC)
     Route: 047
     Dates: start: 20090331, end: 20090519
  5. NEVANAC [Suspect]
     Indication: PROPHYLAXIS
     Dosage: (1 GTT OD (TID OPHTHALMIC), (1 GTT OD BID OPHTHALMIC)
     Route: 047
     Dates: start: 20090520, end: 20090615
  6. METOPROLOL [Concomitant]
  7. ASPIRIN [Concomitant]
  8. VIGAMOX [Concomitant]
  9. ADVIL [Concomitant]
  10. VITAMIN B-12 [Concomitant]

REACTIONS (5)
  - BLOOD PRESSURE INCREASED [None]
  - EPISTAXIS [None]
  - HEADACHE [None]
  - MUCOSAL DRYNESS [None]
  - VASCULAR RUPTURE [None]
